FAERS Safety Report 25757097 (Version 1)
Quarter: 2025Q3

REPORT INFORMATION
  Report Type: Spontaneous
  Country: US (occurrence: US)
  Receive Date: 20250903
  Receipt Date: 20250903
  Transmission Date: 20251021
  Serious: No
  Sender: ROCHE
  Company Number: US-ROCHE-10000378432

PATIENT
  Age: 32 Year
  Sex: Female

DRUGS (7)
  1. RITUXIMAB [Suspect]
     Active Substance: RITUXIMAB
     Indication: Autism spectrum disorder
     Dosage: EVERY 6 MONTHS
     Route: 065
  2. BARICITINIB [Concomitant]
     Active Substance: BARICITINIB
  3. ACETAZOLAMIDE [Concomitant]
     Active Substance: ACETAZOLAMIDE
  4. BARICITINIB [Concomitant]
     Active Substance: BARICITINIB
  5. mirmatrelvir/ritonavic [Concomitant]
  6. COLCHICINE [Concomitant]
     Active Substance: COLCHICINE
  7. UPADACITINIB [Concomitant]
     Active Substance: UPADACITINIB

REACTIONS (1)
  - Herpes zoster [Unknown]
